FAERS Safety Report 13510084 (Version 2)
Quarter: 2017Q3

REPORT INFORMATION
  Report Type: Spontaneous
  Country: GB (occurrence: GB)
  Receive Date: 20170503
  Receipt Date: 20170810
  Transmission Date: 20171127
  Serious: Yes (Hospitalization, Other)
  Sender: FDA-Public Use
  Company Number: GB-BAYER-2017-079307

PATIENT
  Age: 41 Year
  Sex: Female

DRUGS (2)
  1. MIRENA [Suspect]
     Active Substance: LEVONORGESTREL
     Dosage: 20 MCG/24HR, CONT
     Route: 015
     Dates: start: 201504, end: 201704
  2. MIRENA [Suspect]
     Active Substance: LEVONORGESTREL
     Dosage: 20 MCG/24HR, CONT
     Route: 015
     Dates: start: 2009

REACTIONS (16)
  - Autoimmune disorder [Recovering/Resolving]
  - Endocrine disorder [Recovering/Resolving]
  - Hyperacusis [Recovering/Resolving]
  - Pain [Recovering/Resolving]
  - Chemical poisoning [Recovering/Resolving]
  - Fatigue [Recovering/Resolving]
  - Photophobia [Recovering/Resolving]
  - Dysstasia [Recovering/Resolving]
  - Dysarthria [Recovering/Resolving]
  - Gluten sensitivity [None]
  - Red blood cell abnormality [Recovering/Resolving]
  - Migraine [Recovering/Resolving]
  - Shock [Recovering/Resolving]
  - Multi-organ disorder [Recovering/Resolving]
  - Anxiety [Recovering/Resolving]
  - Hypothalamo-pituitary disorder [Recovering/Resolving]

NARRATIVE: CASE EVENT DATE: 2010
